FAERS Safety Report 18423809 (Version 2)
Quarter: 2020Q4

REPORT INFORMATION
  Report Type: Spontaneous
  Country: BE (occurrence: BE)
  Receive Date: 20201024
  Receipt Date: 20201107
  Transmission Date: 20210114
  Serious: Yes (Other)
  Sender: FDA-Public Use
  Company Number: BE-UCBSA-2020041676

PATIENT
  Age: 30 Year
  Sex: Female

DRUGS (4)
  1. KEPPRA [Suspect]
     Active Substance: LEVETIRACETAM
     Indication: SEIZURE
     Dosage: 500 MILLIGRAM, ONCE DAILY (EVENING)
     Dates: start: 20200817, end: 20200831
  2. KEPPRA [Suspect]
     Active Substance: LEVETIRACETAM
     Dosage: 500 MILLIGRAM, 2X/DAY (BID)
     Dates: start: 20200901, end: 2020
  3. KEPPRA [Suspect]
     Active Substance: LEVETIRACETAM
     Dosage: 500MG HALF A DOSE IN THE MORNING AND HALF A DOSE IN THE EVENING
     Dates: start: 2020, end: 2020
  4. KEPPRA [Suspect]
     Active Substance: LEVETIRACETAM
     Dosage: 500MG HALF A DOSE IN THE EVENING
     Dates: start: 2020, end: 202009

REACTIONS (9)
  - Underdose [Unknown]
  - Seizure [Not Recovered/Not Resolved]
  - Vomiting [Recovering/Resolving]
  - Headache [Not Recovered/Not Resolved]
  - Weight decreased [Unknown]
  - Dizziness [Not Recovered/Not Resolved]
  - Product use issue [Unknown]
  - Fatigue [Recovering/Resolving]
  - Nausea [Unknown]

NARRATIVE: CASE EVENT DATE: 2020
